FAERS Safety Report 9111581 (Version 1)
Quarter: 2013Q1

REPORT INFORMATION
  Report Type: Spontaneous
  Country: US (occurrence: US)
  Receive Date: 20130219
  Receipt Date: 20130219
  Transmission Date: 20140127
  Serious: No
  Sender: FDA-Public Use
  Company Number: US-BRISTOL-MYERS SQUIBB COMPANY-16320186

PATIENT
  Age: 59 Year
  Sex: Female
  Weight: 90 kg

DRUGS (14)
  1. ORENCIA [Suspect]
     Indication: RHEUMATOID ARTHRITIS
     Route: 058
     Dates: start: 20111225, end: 20111228
  2. EFFEXOR [Concomitant]
  3. LYRICA [Concomitant]
  4. BACLOFEN [Concomitant]
  5. CLONAZEPAM [Concomitant]
  6. OXYCODONE [Concomitant]
  7. NORCO [Concomitant]
  8. SULFASALAZINE [Concomitant]
  9. VESICARE [Concomitant]
  10. CLONIDINE [Concomitant]
  11. LEFLUNOMIDE [Concomitant]
  12. ENALAPRIL [Concomitant]
  13. VITAMIN D [Concomitant]
  14. VOLTAREN [Concomitant]

REACTIONS (3)
  - Fatigue [Not Recovered/Not Resolved]
  - Headache [Unknown]
  - Stress [Unknown]
